FAERS Safety Report 7002434-8 (Version None)
Quarter: 2010Q3

REPORT INFORMATION
  Report Type: 
  Country: None (occurrence: None)
  Receive Date: 20100917
  Receipt Date: 20100917
  Transmission Date: 20110219
  Serious: Yes (Life-Threatening, Hospitalization, Disabling)
  Sender: FDA-Public Use
  Company Number: None

PATIENT
  Sex: Female
  Weight: 58.2 kg

DRUGS (1)
  1. ALDACTONE [Suspect]
     Indication: MENIERE'S DISEASE
     Dosage: 25MG 1 A DAY
     Dates: start: 20050101, end: 20100101

REACTIONS (7)
  - COLITIS ISCHAEMIC [None]
  - FATIGUE [None]
  - HYPERHIDROSIS [None]
  - HYPOTENSION [None]
  - INTESTINAL ISCHAEMIA [None]
  - NAUSEA [None]
  - TINNITUS [None]
